FAERS Safety Report 4309433-5 (Version None)
Quarter: 2004Q1

REPORT INFORMATION
  Report Type: 
  Country: None (occurrence: None)
  Receive Date: 20040302
  Receipt Date: 20040224
  Transmission Date: 20041129
  Serious: Yes (Other)
  Sender: FDA-Public Use
  Company Number: PHBS2004JP02673

PATIENT
  Age: 6 Year
  Sex: 0

DRUGS (3)
  1. TEGRETOL [Suspect]
     Route: 048
  2. DEPAKENE [Interacting]
  3. RIVOTRIL [Interacting]

REACTIONS (7)
  - BLISTER [None]
  - DRUG LEVEL DECREASED [None]
  - DRUG LEVEL INCREASED [None]
  - ERYTHEMA [None]
  - MEDICATION ERROR [None]
  - PYREXIA [None]
  - STEVENS-JOHNSON SYNDROME [None]
